FAERS Safety Report 10285749 (Version 1)
Quarter: 2014Q3

REPORT INFORMATION
  Report Type: Spontaneous
  Country: SE (occurrence: SE)
  Receive Date: 20140709
  Receipt Date: 20140709
  Transmission Date: 20150326
  Serious: Yes (Hospitalization)
  Sender: FDA-Public Use
  Company Number: SE-BRISTOL-MYERS SQUIBB COMPANY-21151352

PATIENT
  Age: 82 Year
  Sex: Male

DRUGS (3)
  1. PRADAXA [Suspect]
     Active Substance: DABIGATRAN ETEXILATE MESYLATE
     Dosage: CAPSULE
     Route: 048
     Dates: start: 20140521, end: 20140524
  2. ELIQUIS [Suspect]
     Active Substance: APIXABAN
     Dosage: FILMDRAGERAD TABLET
     Route: 048
     Dates: start: 20140525, end: 20140529
  3. BISOPROLOL [Suspect]
     Active Substance: BISOPROLOL
     Dates: start: 20140521, end: 20140529

REACTIONS (1)
  - Abdominal pain [Recovered/Resolved]

NARRATIVE: CASE EVENT DATE: 20140524
